FAERS Safety Report 6871393-0 (Version None)
Quarter: 2010Q3

REPORT INFORMATION
  Report Type: 
  Country: None (occurrence: None)
  Receive Date: 20100723
  Receipt Date: 20100713
  Transmission Date: 20110219
  Serious: Yes (Death, Hospitalization, Other)
  Sender: FDA-Public Use
  Company Number: US-PFIZER INC-2008068819

PATIENT
  Sex: Male

DRUGS (6)
  1. LIPITOR [Suspect]
     Indication: BLOOD CHOLESTEROL INCREASED
     Dosage: 20 MG, 1X/DAY
     Route: 048
  2. LIPITOR [Suspect]
     Indication: CARDIAC DISORDER
  3. LIPITOR [Suspect]
     Indication: DIABETES MELLITUS
  4. CARDIAC THERAPY [Concomitant]
  5. ANTITHROMBOTIC AGENTS [Concomitant]
  6. INSULIN [Concomitant]
     Dosage: UNK

REACTIONS (4)
  - BRADYCARDIA [None]
  - CARDIAC FAILURE [None]
  - CEREBROVASCULAR ACCIDENT [None]
  - WEIGHT DECREASED [None]
